FAERS Safety Report 13325011 (Version 2)
Quarter: 2017Q1

REPORT INFORMATION
  Report Type: Report from Study
  Country: US (occurrence: GT)
  Receive Date: 20170310
  Receipt Date: 20170327
  Transmission Date: 20170428
  Serious: Yes (Other)
  Sender: FDA-Public Use
  Company Number: US-SUNOVION-2017SUN001061

PATIENT
  Age: 81 Year
  Sex: Female

DRUGS (1)
  1. INDACATEROL AND GLYCOPYRROLATE [Suspect]
     Active Substance: GLYCOPYRROLATE\INDACATEROL MALEATE
     Indication: LUNG DISORDER
     Dosage: 1 DF (0.11/0.05 MG), UNK
     Route: 065

REACTIONS (4)
  - Tinnitus [Recovered/Resolved]
  - Choking [Recovered/Resolved]
  - Product use issue [Recovered/Resolved]
  - Cough [Recovered/Resolved]
